FAERS Safety Report 5627095-1 (Version None)
Quarter: 2008Q1

REPORT INFORMATION
  Report Type: 
  Country: None (occurrence: None)
  Receive Date: 20080118
  Receipt Date: 20071004
  Transmission Date: 20080703
  Serious: No
  Sender: FDA-Public Use
  Company Number: 2007-BP-22282BP

PATIENT
  Sex: Female

DRUGS (1)
  1. APTIVUS [Suspect]
     Dosage: (250 MG TPV / 100 MG)

REACTIONS (2)
  - CHEILITIS [None]
  - LIP SWELLING [None]
